FAERS Safety Report 21983530 (Version 1)
Quarter: 2023Q1

REPORT INFORMATION
  Report Type: Spontaneous
  Country: EU (occurrence: EU)
  Receive Date: 20230213
  Receipt Date: 20230213
  Transmission Date: 20230417
  Serious: Yes (Other)
  Sender: FDA-Public Use
  Company Number: EU-ORG100016242-2023000021

PATIENT

DRUGS (6)
  1. EXPAREL [Suspect]
     Active Substance: BUPIVACAINE
     Indication: Shoulder arthroplasty
     Dosage: 266 MG; 20 ML WITH VARIOUS DILUENT LEVELS
     Route: 052
  2. ROPIVACAINE [Concomitant]
     Active Substance: ROPIVACAINE
     Indication: Preoperative care
     Dosage: 20 ML
     Route: 065
  3. GABAPENTIN [Concomitant]
     Active Substance: GABAPENTIN
     Indication: Preoperative care
     Dosage: 300 MG
     Route: 065
  4. ACETAMINOPHEN [Concomitant]
     Active Substance: ACETAMINOPHEN
     Indication: Preoperative care
     Dosage: 1000 MG
     Route: 065
  5. TORADOL [Concomitant]
     Active Substance: KETOROLAC TROMETHAMINE
     Indication: Preoperative care
     Dosage: 30 MG
     Route: 065
  6. DEXAMETHASONE [Concomitant]
     Active Substance: DEXAMETHASONE
     Indication: Preoperative care
     Dosage: 8 MG
     Route: 065

REACTIONS (4)
  - Postoperative wound infection [Unknown]
  - Medical device site joint infection [Unknown]
  - Shoulder arthroplasty [Unknown]
  - Joint dislocation postoperative [Unknown]
